FAERS Safety Report 8495582-7 (Version None)
Quarter: 2012Q3

REPORT INFORMATION
  Report Type: 
  Country: None (occurrence: None)
  Receive Date: 20120709
  Receipt Date: 20120703
  Transmission Date: 20120928
  Serious: Yes (Other)
  Sender: FDA-Public Use
  Company Number: FR-ROCHE-1077530

PATIENT
  Age: 48 Year
  Sex: Female

DRUGS (5)
  1. PEGASYS [Suspect]
     Indication: HEPATITIS C
     Dates: start: 20110502, end: 20120402
  2. BOCEPREVIR [Suspect]
     Indication: HEPATITIS C
     Dates: start: 20110530, end: 20120402
  3. FOLIC ACID [Concomitant]
     Dates: start: 20110411
  4. COPEGUS [Suspect]
     Indication: HEPATITIS C
     Dates: start: 20110502, end: 20120402
  5. URSODIOL [Concomitant]
     Dates: start: 20070101

REACTIONS (1)
  - PORPHYRIA NON-ACUTE [None]
